FAERS Safety Report 7951556-3 (Version None)
Quarter: 2011Q4

REPORT INFORMATION
  Report Type: 
  Country: None (occurrence: None)
  Receive Date: 20111201
  Receipt Date: 20111128
  Transmission Date: 20120403
  Serious: Yes (Death, Life-Threatening, Hospitalization, Other)
  Sender: FDA-Public Use
  Company Number: IL-SANOFI-AVENTIS-2011SA075276

PATIENT
  Age: 72 Year
  Sex: Female
  Weight: 55 kg

DRUGS (15)
  1. TRASTUZUMAB [Suspect]
     Route: 042
     Dates: start: 20100728, end: 20100728
  2. CITALOPRAM [Concomitant]
     Route: 048
  3. BONDORMIN [Concomitant]
     Route: 048
  4. BEVACIZUMAB [Suspect]
     Dosage: DOSE LEVEL: 15 MG/KG
     Route: 042
     Dates: start: 20101025
  5. CARBOPLATIN [Suspect]
     Dosage: FORM: VIALDOSE LEVEL: 5 AUC
     Route: 042
     Dates: start: 20101025
  6. DISOTHIAZIDE [Concomitant]
     Route: 048
  7. RAMIPRIL [Concomitant]
     Route: 048
  8. BEVACIZUMAB [Suspect]
     Dosage: DOSE LEVEL: 15 MG/KG
     Route: 042
     Dates: start: 20100728, end: 20100728
  9. SIMVASTATIN [Concomitant]
     Route: 048
  10. DOCETAXEL [Suspect]
     Dosage: FORM: VIALDOSE LEVEL: 75 MG/M2
     Route: 042
     Dates: start: 20101025
  11. CARBOPLATIN [Suspect]
     Dosage: FORM: VIALDOSE LEVEL: 5 AUC
     Route: 042
     Dates: start: 20100728, end: 20100728
  12. OMEPRAZOLE [Concomitant]
     Route: 048
     Dates: start: 20000101
  13. DOCETAXEL [Suspect]
     Dosage: FORM: VIALDOSE LEVEL: 75 MG/M2
     Route: 042
     Dates: start: 20100728, end: 20100728
  14. TRASTUZUMAB [Suspect]
     Dosage: DOSE LEVEL:6 MG/KG
     Route: 042
     Dates: start: 20100728
  15. MICROPIRIN [Concomitant]
     Route: 048

REACTIONS (7)
  - NEUTROPENIA [None]
  - FEBRILE NEUTROPENIA [None]
  - URINARY TRACT INFECTION [None]
  - MULTI-ORGAN FAILURE [None]
  - SEPSIS [None]
  - MYOCARDIAL INFARCTION [None]
  - CEREBRAL HAEMORRHAGE [None]
